FAERS Safety Report 12209234 (Version 2)
Quarter: 2016Q2

REPORT INFORMATION
  Report Type: Spontaneous
  Country: BR (occurrence: BR)
  Receive Date: 20160324
  Receipt Date: 20160407
  Transmission Date: 20160815
  Serious: Yes (Other)
  Sender: FDA-Public Use
  Company Number: PHHY2016BR039014

PATIENT
  Age: 83 Year
  Sex: Female
  Weight: 70 kg

DRUGS (6)
  1. HYDERGINE [Suspect]
     Active Substance: ERGOLOID MESYLATES
     Indication: MEMORY IMPAIRMENT
     Dosage: 10 DRP, UNK
     Route: 048
  2. HYDERGINE [Suspect]
     Active Substance: ERGOLOID MESYLATES
     Indication: CEREBRAL DISORDER
  3. HYDERGINE [Suspect]
     Active Substance: ERGOLOID MESYLATES
     Indication: BRAIN HYPOXIA
  4. HYDERGINE [Suspect]
     Active Substance: ERGOLOID MESYLATES
     Indication: BRAIN HYPOXIA
  5. HYDERGINE [Suspect]
     Active Substance: ERGOLOID MESYLATES
     Indication: MEMORY IMPAIRMENT
     Dosage: 1 DF, QHS (BEFORE GOING TO BED)
     Route: 048
  6. HYDERGINE [Suspect]
     Active Substance: ERGOLOID MESYLATES
     Indication: CEREBRAL DISORDER

REACTIONS (6)
  - Insomnia [Recovering/Resolving]
  - Brain hypoxia [Recovering/Resolving]
  - Head discomfort [Recovering/Resolving]
  - Hypertension [Recovering/Resolving]
  - Balance disorder [Recovering/Resolving]
  - Dizziness [Recovering/Resolving]
